FAERS Safety Report 4362341-6 (Version None)
Quarter: 2004Q2

REPORT INFORMATION
  Report Type: 
  Country: None (occurrence: None)
  Receive Date: 20040518
  Receipt Date: 20040503
  Transmission Date: 20050107
  Serious: Yes (Hospitalization, Other)
  Sender: FDA-Public Use
  Company Number: 04-161-0092

PATIENT
  Age: 62 Year
  Sex: Male

DRUGS (1)
  1. DOXORUBICIN HCL [Suspect]
     Indication: HEPATIC NEOPLASM MALIGNANT
     Dosage: 85 MG/M2 IV X 1
     Route: 042
     Dates: start: 20040329, end: 20040329

REACTIONS (3)
  - ENCEPHALOPATHY [None]
  - FEBRILE NEUTROPENIA [None]
  - RENAL FAILURE ACUTE [None]
